FAERS Safety Report 24289410 (Version 1)
Quarter: 2024Q3

REPORT INFORMATION
  Report Type: Spontaneous
  Country: US (occurrence: US)
  Receive Date: 20240906
  Receipt Date: 20240906
  Transmission Date: 20241017
  Serious: No
  Sender: ASCENT
  Company Number: US-ASCENT-2024ASSPO00019

PATIENT
  Age: 72 Year
  Sex: Male
  Weight: 184 kg

DRUGS (2)
  1. POTASSIUM CITRATE [Suspect]
     Active Substance: POTASSIUM CITRATE
     Indication: Nephrolithiasis
     Dosage: 12 TABLETS CONSUMED FROM THE MEDICATION BOTTLE
     Route: 048
     Dates: start: 20240710, end: 20240720
  2. ALLOPURINOL [Concomitant]
     Active Substance: ALLOPURINOL
     Indication: Product used for unknown indication
     Route: 065

REACTIONS (2)
  - Product residue present [Recovered/Resolved]
  - Product substitution issue [Unknown]

NARRATIVE: CASE EVENT DATE: 20240717
